FAERS Safety Report 14967039 (Version 1)
Quarter: 2018Q3

REPORT INFORMATION
  Report Type: Spontaneous
  Country: FR (occurrence: FR)
  Receive Date: 20180604
  Receipt Date: 20180604
  Transmission Date: 20181010
  Serious: Yes (Hospitalization, Other)
  Sender: FDA-Public Use
  Company Number: FR-CHEPLA-C20170814

PATIENT
  Sex: Female

DRUGS (2)
  1. TRISENOX [Suspect]
     Active Substance: ARSENIC TRIOXIDE
     Indication: ACUTE MYELOID LEUKAEMIA
     Dosage: ARSENIC TRIOXIDE (TRISENOX) AS 4 MONTHLY COURSES OF SPACED ONE MONTH WITHOUT TREATMENT
     Route: 041
     Dates: start: 20170212
  2. VESANOID [Suspect]
     Active Substance: TRETINOIN
     Indication: ACUTE MYELOID LEUKAEMIA
     Route: 048
     Dates: start: 20170212

REACTIONS (2)
  - Headache [Recovered/Resolved]
  - Intracranial pressure increased [Recovered/Resolved]

NARRATIVE: CASE EVENT DATE: 2017
